FAERS Safety Report 5130589-9 (Version None)
Quarter: 2006Q4

REPORT INFORMATION
  Report Type: 
  Country: None (occurrence: None)
  Receive Date: 20061019
  Receipt Date: 20060904
  Transmission Date: 20070319
  Serious: Yes (Hospitalization)
  Sender: FDA-Public Use
  Company Number: JP-AVENTIS-200612734JP

PATIENT
  Age: 68 Year
  Sex: Male
  Weight: 66 kg

DRUGS (7)
  1. LASIX [Suspect]
     Indication: ASCITES
     Route: 048
     Dates: start: 20060710, end: 20060901
  2. AMINOLEBAN EN [Suspect]
     Indication: HEPATIC CIRRHOSIS
     Dosage: DOSE: 2 P/DAY
     Route: 048
     Dates: start: 20060710
  3. LOXONIN                            /00890701/ [Suspect]
     Indication: CANCER PAIN
     Route: 048
     Dates: start: 20060710, end: 20060824
  4. LANSOPRAZOLE [Concomitant]
     Indication: ULCER
     Route: 048
     Dates: start: 20060710, end: 20060824
  5. GASTROM [Concomitant]
     Indication: ULCER
     Route: 048
     Dates: start: 20060710, end: 20060824
  6. URSODEOXYCHOLIC ACID [Concomitant]
     Indication: HEPATITIS
     Route: 048
     Dates: start: 20060710
  7. ALDACTONE [Concomitant]
     Indication: ASCITES
     Route: 048
     Dates: start: 20060710, end: 20060905

REACTIONS (1)
  - STEVENS-JOHNSON SYNDROME [None]
